FAERS Safety Report 10022553 (Version 1)
Quarter: 2014Q1

REPORT INFORMATION
  Report Type: Spontaneous
  Country: US (occurrence: US)
  Receive Date: 20140319
  Receipt Date: 20140319
  Transmission Date: 20141002
  Serious: No
  Sender: FDA-Public Use
  Company Number: US-ASTRAZENECA-2014SE05594

PATIENT
  Sex: 0

DRUGS (1)
  1. METOPROLOL SUCCINATE [Suspect]
     Dosage: NR NR
     Route: 048

REACTIONS (1)
  - Coeliac disease [Unknown]
